FAERS Safety Report 10420418 (Version 1)
Quarter: 2014Q3

REPORT INFORMATION
  Report Type: Spontaneous
  Country: US (occurrence: None)
  Receive Date: 20140701
  Receipt Date: 20140701
  Transmission Date: 20150326
  Serious: No
  Sender: FDA-Public Use
  Company Number: 1000067029

PATIENT
  Age: 69 Year
  Sex: Female

DRUGS (8)
  1. METFORMIN [Concomitant]
     Active Substance: METFORMIN HYDROCHLORIDE
  2. CRESTOR(ROSUVASTATIN CALCIUM) [Concomitant]
  3. LEVOTHYROXINE(LEVOTHYROXINE SODIUM)(LEVOTHYROXINE SODIUM) [Concomitant]
  4. EPROSARTAN [Concomitant]
     Active Substance: EPROSARTAN
  5. LINZESS [Suspect]
     Active Substance: LINACLOTIDE
     Indication: CONSTIPATION
     Route: 048
     Dates: start: 20140428
  6. CARVEDILOL. [Concomitant]
     Active Substance: CARVEDILOL
  7. NIFEDIPINE. [Concomitant]
     Active Substance: NIFEDIPINE
  8. HYDROCHLOROTHIAZIDE. [Concomitant]
     Active Substance: HYDROCHLOROTHIAZIDE

REACTIONS (1)
  - Blood glucose increased [None]

NARRATIVE: CASE EVENT DATE: 20140428
